FAERS Safety Report 5297970-9 (Version None)
Quarter: 2007Q2

REPORT INFORMATION
  Report Type: 
  Country: None (occurrence: None)
  Receive Date: 20070416
  Receipt Date: 20070402
  Transmission Date: 20071010
  Serious: Yes (Hospitalization, Other)
  Sender: FDA-Public Use
  Company Number: US-ELI_LILLY_AND_COMPANY-US200703004043

PATIENT
  Age: 57 Year
  Sex: Female
  Weight: 63.492 kg

DRUGS (5)
  1. CYMBALTA [Suspect]
     Indication: BIPOLAR I DISORDER
     Dosage: 30 MG, DAILY (1/D)
     Route: 048
     Dates: start: 20060530
  2. CYMBALTA [Suspect]
     Dosage: 60 MG, DAILY (1/D)
     Route: 048
     Dates: end: 20070123
  3. OXAZEPAM [Concomitant]
     Indication: INSOMNIA
     Dosage: 15 MG, EACH EVENING
     Dates: start: 20061121, end: 20070123
  4. BUPROPION HCL [Concomitant]
     Indication: BIPOLAR I DISORDER
     Dosage: 150 MG, 2/D
     Dates: start: 20060811
  5. SEROQUEL [Concomitant]
     Indication: BIPOLAR DISORDER
     Dosage: 600 MG, EACH EVENING
     Dates: start: 20020514

REACTIONS (1)
  - RENAL FAILURE [None]
